FAERS Safety Report 7065107-1 (Version None)
Quarter: 2010Q4

REPORT INFORMATION
  Report Type: 
  Country: None (occurrence: None)
  Receive Date: 20101027
  Receipt Date: 19890822
  Transmission Date: 20110411
  Serious: Yes (Death, Hospitalization)
  Sender: FDA-Public Use
  Company Number: US-ROCHE-890290064001

PATIENT
  Age: 65 Year
  Sex: Male

DRUGS (2)
  1. INTERFERON ALFA-2A [Suspect]
     Route: 042
     Dates: end: 19890718
  2. TECELEUCIN [Suspect]
     Route: 042
     Dates: end: 19890718

REACTIONS (5)
  - AGITATION [None]
  - ARRHYTHMIA [None]
  - DEATH [None]
  - DISORIENTATION [None]
  - PYREXIA [None]
